FAERS Safety Report 20391028 (Version 1)
Quarter: 2022Q1

REPORT INFORMATION
  Report Type: Spontaneous
  Country: US (occurrence: None)
  Receive Date: 20220127
  Receipt Date: 20220127
  Transmission Date: 20220423
  Serious: No
  Sender: FDA-Public Use
  Company Number: None

PATIENT
  Age: 37 Year
  Sex: Female

DRUGS (1)
  1. HUMIRA [Suspect]
     Active Substance: ADALIMUMAB
     Dosage: 1 PEN
     Route: 058
     Dates: start: 202003, end: 202201

REACTIONS (2)
  - Disease progression [None]
  - Drug ineffective [None]

NARRATIVE: CASE EVENT DATE: 20220127
